FAERS Safety Report 8585377-8 (Version None)
Quarter: 2012Q3

REPORT INFORMATION
  Report Type: 
  Country: None (occurrence: None)
  Receive Date: 20120810
  Receipt Date: 20120802
  Transmission Date: 20120928
  Serious: Yes (Other)
  Sender: FDA-Public Use
  Company Number: JP-VERTEX PHARMACEUTICALS INC.-AE-2012-011706

PATIENT
  Age: 48 Year
  Sex: Female

DRUGS (8)
  1. TELAVIC (TELAPREVIR) [Suspect]
     Indication: HEPATITIS C
     Route: 048
     Dates: start: 20120529, end: 20120626
  2. TELAVIC (TELAPREVIR) [Suspect]
     Route: 048
     Dates: start: 20120626, end: 20120710
  3. PEG-INTRON [Concomitant]
     Route: 058
     Dates: start: 20120529, end: 20120605
  4. LOXONIN [Concomitant]
     Route: 048
  5. FERROUS SULFATE TAB [Concomitant]
     Route: 048
     Dates: start: 20120417
  6. REBETOL [Concomitant]
     Indication: HEPATITIS C
     Route: 048
     Dates: start: 20120529, end: 20120703
  7. REBETOL [Concomitant]
     Route: 048
     Dates: start: 20120703, end: 20120710
  8. PEG-INTRON [Concomitant]
     Route: 058
     Dates: start: 20120612, end: 20120703

REACTIONS (1)
  - ERYTHEMA MULTIFORME [None]
